FAERS Safety Report 5634122-4 (Version None)
Quarter: 2008Q1

REPORT INFORMATION
  Report Type: 
  Country: None (occurrence: None)
  Receive Date: 20080131
  Receipt Date: 20070719
  Transmission Date: 20080703
  Serious: Yes (Hospitalization)
  Sender: FDA-Public Use
  Company Number: 159156USA

PATIENT
  Sex: Female

DRUGS (1)
  1. COPAXONE [Suspect]
     Indication: MULTIPLE SCLEROSIS
     Dosage: (20 MG), SUBCUTANEOUS
     Route: 058

REACTIONS (3)
  - SUPERIOR VENA CAVAL OCCLUSION [None]
  - SYNCOPE [None]
  - THROMBOSIS [None]
